FAERS Safety Report 6529475-9 (Version None)
Quarter: 2009Q4

REPORT INFORMATION
  Report Type: 
  Country: None (occurrence: None)
  Receive Date: 20091231
  Receipt Date: 20091218
  Transmission Date: 20100525
  Serious: Yes (Other)
  Sender: FDA-Public Use
  Company Number: AUR-APL-2009-01627

PATIENT
  Age: 78 Year
  Sex: Female

DRUGS (1)
  1. SERTRALINE HCL [Suspect]
     Indication: DEPRESSION
     Dosage: 50-100MG, DAILY

REACTIONS (3)
  - MOUTH ULCERATION [None]
  - ORAL BACTERIAL INFECTION [None]
  - ORAL CANDIDIASIS [None]
